FAERS Safety Report 20825091 (Version 2)
Quarter: 2022Q3

REPORT INFORMATION
  Report Type: Spontaneous
  Country: US (occurrence: US)
  Receive Date: 20220513
  Receipt Date: 20220809
  Transmission Date: 20221027
  Serious: No
  Sender: FDA-Public Use
  Company Number: US-BRISTOL-MYERS SQUIBB COMPANY-2022-032721

PATIENT
  Age: 75 Year
  Sex: Female

DRUGS (2)
  1. POMALYST [Suspect]
     Active Substance: POMALIDOMIDE
     Indication: Plasma cell myeloma
     Dosage: DOSE: 4 MILLIGRAM, FREQ: DAILY FOR 21 DAYS
     Route: 048
     Dates: start: 20211115
  2. POMALYST [Suspect]
     Active Substance: POMALIDOMIDE
     Route: 048
     Dates: start: 202111

REACTIONS (8)
  - Anxiety [Unknown]
  - Fatigue [Recovered/Resolved]
  - Chest discomfort [Recovered/Resolved]
  - Dyspnoea [Recovered/Resolved]
  - Palpitations [Unknown]
  - Hypersensitivity [Unknown]
  - Product dose omission issue [Unknown]
  - Chest pain [Unknown]

NARRATIVE: CASE EVENT DATE: 20220426
